FAERS Safety Report 19150651 (Version 1)
Quarter: 2021Q2

REPORT INFORMATION
  Report Type: Report from Study
  Country: None (occurrence: CO)
  Receive Date: 20210418
  Receipt Date: 20210418
  Transmission Date: 20210717
  Serious: Yes (Other)
  Sender: FDA-Public Use
  Company Number: CO-ABBVIE-21K-036-3864433-00

PATIENT
  Sex: Male
  Weight: 80 kg

DRUGS (2)
  1. ZEMPLAR [Suspect]
     Active Substance: PARICALCITOL
     Indication: HYPERPARATHYROIDISM SECONDARY
     Route: 042
     Dates: start: 20161129, end: 20201110
  2. ZEMPLAR [Suspect]
     Active Substance: PARICALCITOL
     Indication: CHRONIC KIDNEY DISEASE

REACTIONS (9)
  - Vision blurred [Recovering/Resolving]
  - Productive cough [Recovering/Resolving]
  - Eye pruritus [Recovering/Resolving]
  - Insomnia [Recovering/Resolving]
  - Lacrimation increased [Recovering/Resolving]
  - Cataract [Recovering/Resolving]
  - Eye irritation [Recovering/Resolving]
  - Umbilical hernia [Recovering/Resolving]
  - Dysphonia [Recovering/Resolving]

NARRATIVE: CASE EVENT DATE: 2018
